FAERS Safety Report 9476233 (Version 2)
Quarter: 2013Q3

REPORT INFORMATION
  Report Type: Spontaneous
  Country: JP (occurrence: JP)
  Receive Date: 20130826
  Receipt Date: 20130826
  Transmission Date: 20140515
  Serious: Yes (Hospitalization)
  Sender: FDA-Public Use
  Company Number: JP-SUCAMPO PHARMA AMERICAS, INC-SPI201300609

PATIENT
  Age: 86 Year
  Sex: Female
  Weight: 51 kg

DRUGS (4)
  1. AMITIZA [Suspect]
     Indication: CONSTIPATION
     Dosage: 24 MCG, BID
     Route: 048
     Dates: start: 20130801, end: 20130805
  2. VALTREX [Suspect]
     Indication: HERPES ZOSTER
     Dosage: 1000 MG, TID
     Route: 048
     Dates: start: 20130806, end: 20130806
  3. LOXOPROFEN SODIUM [Suspect]
     Indication: PYREXIA
     Dosage: 60 MG, QD
     Route: 048
     Dates: start: 20130806, end: 20130806
  4. ACYCLOVIR [Suspect]
     Indication: HERPES ZOSTER
     Dosage: UNK
     Route: 061
     Dates: start: 20130806

REACTIONS (2)
  - Renal failure acute [Recovered/Resolved]
  - Hyperkalaemia [Recovered/Resolved]
